FAERS Safety Report 9251638 (Version 1)
Quarter: 2013Q1

REPORT INFORMATION
  Report Type: Spontaneous
  Country: US (occurrence: None)
  Receive Date: 20130305
  Receipt Date: 20130305
  Transmission Date: 20140127
  Serious: Yes (Other)
  Sender: FDA-Public Use
  Company Number: 163-21880-12071682

PATIENT
  Age: 80 Year
  Sex: Female

DRUGS (3)
  1. REVLIMID [Suspect]
     Indication: PLASMA CELL MYELOMA
     Dosage: 2 IN 1 D
     Route: 048
     Dates: start: 20100323, end: 20120710
  2. VITAMINS [Concomitant]
  3. CALCIUM (CALCIUM) [Concomitant]

REACTIONS (2)
  - Plasma cell myeloma [None]
  - Splenomegaly [None]
